FAERS Safety Report 23351897 (Version 1)
Quarter: 2023Q4

REPORT INFORMATION
  Report Type: Spontaneous
  Country: IL (occurrence: IL)
  Receive Date: 20231229
  Receipt Date: 20231229
  Transmission Date: 20240110
  Serious: Yes (Other)
  Sender: FDA-Public Use
  Company Number: IL-ABBVIE-5556700

PATIENT
  Sex: Female

DRUGS (1)
  1. HUMIRA [Suspect]
     Active Substance: ADALIMUMAB
     Indication: Juvenile idiopathic arthritis
     Dosage: FORM STRENGTH: 20 MG
     Route: 058

REACTIONS (2)
  - Acute disseminated encephalomyelitis [Unknown]
  - Diplopia [Unknown]

NARRATIVE: CASE EVENT DATE: 20231101
